FAERS Safety Report 9253885 (Version 3)
Quarter: 2013Q2

REPORT INFORMATION
  Report Type: Spontaneous
  Country: US (occurrence: None)
  Receive Date: 20130419
  Receipt Date: 20130516
  Transmission Date: 20140414
  Serious: Yes (Hospitalization, Other)
  Sender: FDA-Public Use
  Company Number: SYM-2013-02672

PATIENT
  Age: 77 Year
  Sex: Male

DRUGS (5)
  1. FLUOROURACIL [Suspect]
     Indication: PRODUCT USED FOR UNKNOWN INDICATION
     Route: 061
  2. FLUOROURACIL [Suspect]
     Indication: ACTINIC KERATOSIS
     Route: 061
  3. CORTICOSTEROIDS [Suspect]
     Indication: PRODUCT USED FOR UNKNOWN INDICATION
  4. LISINOPRIL (LISINOPRIL) (LISINOPRIL) [Suspect]
     Indication: PRODUCT USED FOR UNKNOWN INDICATION
  5. METFORMIN HYDROCHLORIDE METFORMIN HYDROCHLORIDE) (METFORMIN HYDROCHLORIDE) [Concomitant]

REACTIONS (5)
  - Angioedema [None]
  - Presyncope [None]
  - Dysphonia [None]
  - Hypersensitivity [None]
  - Medication error [None]
